FAERS Safety Report 8723120 (Version 2)
Quarter: 2012Q4

REPORT INFORMATION
  Report Type: 
  Country: FR (occurrence: FR)
  Receive Date: 20120814
  Receipt Date: 20121206
  Transmission Date: 20130627
  Serious: Yes (Death, Other)
  Sender: FDA-Public Use
  Company Number: FR-ELI_LILLY_AND_COMPANY-FR201208000666

PATIENT
  Age: 89 Year
  Sex: Female

DRUGS (15)
  1. CYMBALTA [Suspect]
     Indication: ANXIETY
     Dosage: 60 mg, qd
     Route: 048
     Dates: start: 20120626, end: 20120629
  2. KARDEGIC [Concomitant]
  3. INEXIUM [Concomitant]
  4. GAVISCON                           /00237601/ [Concomitant]
  5. CALCIDOSE [Concomitant]
  6. PARACETAMOL [Concomitant]
  7. TRAMADOL [Concomitant]
  8. TRANSIPEG [Concomitant]
  9. DIFFU K [Concomitant]
  10. FUROSEMIDE [Concomitant]
  11. ALPRAZOLAM [Concomitant]
  12. ROCEPHINE [Concomitant]
     Indication: LUNG INFECTION
     Dosage: 1 g, qd
     Route: 058
     Dates: start: 20120618, end: 20120629
  13. LOVENOX [Concomitant]
     Indication: PROPHYLAXIS
     Dosage: 4000 IU, unknown
     Route: 058
     Dates: start: 20120618, end: 20120629
  14. OXYNORM [Concomitant]
     Indication: ABDOMINAL PAIN
     Dosage: 5 mg, qd
     Route: 048
     Dates: start: 20120618, end: 20120629
  15. SPECIAFOLDINE [Concomitant]
     Indication: FOLATE DEFICIENCY
     Dosage: 1 DF, unknown
     Route: 048
     Dates: start: 20120619, end: 20120629

REACTIONS (8)
  - Hepatocellular injury [Fatal]
  - Ocular icterus [Fatal]
  - Pyrexia [Fatal]
  - Cardiac failure [Unknown]
  - Gastritis [Unknown]
  - Duodenitis [Unknown]
  - Somnolence [Unknown]
  - Pneumonia [Unknown]
